FAERS Safety Report 23547270 (Version 1)
Quarter: 2024Q1

REPORT INFORMATION
  Report Type: Spontaneous
  Country: IT (occurrence: IT)
  Receive Date: 20240221
  Receipt Date: 20240221
  Transmission Date: 20240409
  Serious: Yes (Other)
  Sender: FDA-Public Use
  Company Number: IT-MLMSERVICE-20240201-4807799-1

PATIENT
  Age: 18 Year
  Sex: Female

DRUGS (4)
  1. LAMOTRIGINE [Suspect]
     Active Substance: LAMOTRIGINE
     Indication: Psychiatric symptom
     Dosage: UNK (UP TO 50 MG/DAY)
     Route: 065
  2. LAMOTRIGINE [Suspect]
     Active Substance: LAMOTRIGINE
     Indication: Condition aggravated
  3. AGOMELATINE [Suspect]
     Active Substance: AGOMELATINE
     Indication: Condition aggravated
     Dosage: UNK (UP TO 25 MG/DAY)
     Route: 065
  4. AGOMELATINE [Suspect]
     Active Substance: AGOMELATINE
     Indication: Psychiatric symptom

REACTIONS (1)
  - Purpura [Unknown]
